FAERS Safety Report 7606878-2 (Version None)
Quarter: 2011Q3

REPORT INFORMATION
  Report Type: 
  Country: None (occurrence: None)
  Receive Date: 20110713
  Receipt Date: 20110706
  Transmission Date: 20111222
  Serious: Yes (Other)
  Sender: FDA-Public Use
  Company Number: GR-GLAXOSMITHKLINE-B0731409A

PATIENT
  Age: 85 Year
  Sex: Female

DRUGS (2)
  1. CEFUROXIME AXETIL [Suspect]
     Indication: FEBRILE INFECTION
     Dosage: 500MG TWICE PER DAY
     Route: 048
     Dates: start: 20110627
  2. CIPROFLOXACIN [Suspect]

REACTIONS (5)
  - PHARYNGEAL OEDEMA [None]
  - CONVULSION [None]
  - FACE OEDEMA [None]
  - DYSPHAGIA [None]
  - BLOOD PRESSURE DECREASED [None]
